FAERS Safety Report 6292821-8 (Version None)
Quarter: 2009Q3

REPORT INFORMATION
  Report Type: 
  Country: None (occurrence: None)
  Receive Date: 20090731
  Receipt Date: 20090709
  Transmission Date: 20100115
  Serious: Yes (Other)
  Sender: FDA-Public Use
  Company Number: PL-PFIZER INC-2009244874

PATIENT
  Age: 8 Year

DRUGS (5)
  1. NELFINAVIR MESILATE [Suspect]
     Indication: ANTIRETROVIRAL THERAPY
  2. LAMIVUDINE [Suspect]
     Indication: ANTIRETROVIRAL THERAPY
     Dosage: UNK
     Dates: start: 19980101
  3. ZIDOVUDINE [Suspect]
     Indication: ANTIRETROVIRAL THERAPY
  4. STAVUDINE [Suspect]
     Indication: ANTIRETROVIRAL THERAPY
  5. DIDANOSINE [Suspect]
     Indication: ANTIRETROVIRAL THERAPY

REACTIONS (1)
  - LIPODYSTROPHY ACQUIRED [None]
